FAERS Safety Report 21757637 (Version 4)
Quarter: 2023Q1

REPORT INFORMATION
  Report Type: Report from Study
  Country: US (occurrence: US)
  Receive Date: 20221221
  Receipt Date: 20230325
  Transmission Date: 20230418
  Serious: Yes (Other)
  Sender: FDA-Public Use
  Company Number: US-ABBVIE-4244389

PATIENT
  Sex: Female

DRUGS (4)
  1. IMBRUVICA [Suspect]
     Active Substance: IBRUTINIB
     Indication: Product used for unknown indication
     Route: 048
  2. IMBRUVICA [Suspect]
     Active Substance: IBRUTINIB
     Indication: Product used for unknown indication
     Route: 048
     Dates: start: 20230316
  3. ASPIRIN [Suspect]
     Active Substance: ASPIRIN
     Indication: Product used for unknown indication
     Route: 065
  4. ACETAMINOPHEN [Suspect]
     Active Substance: ACETAMINOPHEN
     Indication: Product used for unknown indication
     Route: 065

REACTIONS (22)
  - Systemic lupus erythematosus [Unknown]
  - Arthralgia [Unknown]
  - Drug ineffective [Unknown]
  - Asthenia [Unknown]
  - Somnolence [Unknown]
  - Neck mass [Unknown]
  - Dyspnoea [Unknown]
  - Constipation [Unknown]
  - Pain [Unknown]
  - Weight increased [Unknown]
  - Fatigue [Not Recovered/Not Resolved]
  - Asthenia [Not Recovered/Not Resolved]
  - White blood cell disorder [Unknown]
  - Blood phosphorus increased [Unknown]
  - Blood lactate dehydrogenase increased [Unknown]
  - Blood pressure increased [Unknown]
  - Headache [Unknown]
  - Feeling hot [Unknown]
  - Nausea [Unknown]
  - Night sweats [Unknown]
  - Nasopharyngitis [Unknown]
  - Tinnitus [Unknown]
